FAERS Safety Report 8214760-5 (Version None)
Quarter: 2012Q1

REPORT INFORMATION
  Report Type: 
  Country: None (occurrence: None)
  Receive Date: 20120316
  Receipt Date: 20120302
  Transmission Date: 20120608
  Serious: Yes (Other)
  Sender: FDA-Public Use
  Company Number: JP-ELI_LILLY_AND_COMPANY-JP201203001218

PATIENT
  Age: 34 Year
  Sex: Female

DRUGS (2)
  1. ZYPREXA [Suspect]
     Indication: NEUROSIS
     Dosage: 10 MG, QD
     Route: 048
     Dates: start: 20120203, end: 20120218
  2. LEVOTOMIN [Concomitant]
     Dosage: UNK
     Route: 048

REACTIONS (4)
  - AGGRESSION [None]
  - OFF LABEL USE [None]
  - IRRITABILITY [None]
  - AGITATION [None]
